FAERS Safety Report 21246416 (Version 1)
Quarter: 2022Q3

REPORT INFORMATION
  Report Type: Spontaneous
  Country: GB (occurrence: GB)
  Receive Date: 20220824
  Receipt Date: 20220824
  Transmission Date: 20221027
  Serious: Yes (Other)
  Sender: FDA-Public Use
  Company Number: GB-AUROBINDO-AUR-APL-2022-033144

PATIENT
  Sex: Female

DRUGS (1)
  1. LAMOTRIGINE [Suspect]
     Active Substance: LAMOTRIGINE
     Indication: Epilepsy
     Dosage: 50MG IN THE MORNING 75MG AT NIGHT; ;
     Route: 065

REACTIONS (2)
  - Dissociation [Not Recovered/Not Resolved]
  - Photophobia [Not Recovered/Not Resolved]
